FAERS Safety Report 20815265 (Version 3)
Quarter: 2022Q2

REPORT INFORMATION
  Report Type: Spontaneous
  Country: US (occurrence: US)
  Receive Date: 20220511
  Receipt Date: 20220628
  Transmission Date: 20220720
  Serious: No
  Sender: FDA-Public Use
  Company Number: US-PFIZER INC-202200585897

PATIENT
  Age: 22 Year
  Sex: Female
  Weight: 58.97 kg

DRUGS (2)
  1. GENOTROPIN [Suspect]
     Active Substance: SOMATROPIN
     Indication: Hypopituitarism
     Dosage: 0.6 MG, DAILY
     Dates: start: 1999
  2. GENOTROPIN [Suspect]
     Active Substance: SOMATROPIN
     Indication: Blood growth hormone abnormal
     Dosage: 0.6 MG, DAILY
     Dates: start: 1999

REACTIONS (5)
  - Drug dose omission by device [Not Recovered/Not Resolved]
  - Device breakage [Unknown]
  - Device information output issue [Unknown]
  - Wrong technique in device usage process [Unknown]
  - Device use issue [Unknown]

NARRATIVE: CASE EVENT DATE: 20220401
